FAERS Safety Report 9247611 (Version 1)
Quarter: 2013Q2

REPORT INFORMATION
  Report Type: Spontaneous
  Country: US (occurrence: US)
  Receive Date: 20130423
  Receipt Date: 20130423
  Transmission Date: 20140414
  Serious: Yes (Hospitalization)
  Sender: FDA-Public Use
  Company Number: US-PFIZER INC-2013125062

PATIENT
  Age: 3 Decade
  Sex: Female

DRUGS (3)
  1. XALKORI [Suspect]
     Indication: LUNG NEOPLASM MALIGNANT
     Dosage: 250 MG, 2X/DAY
  2. CARBOPLATIN [Suspect]
     Indication: LUNG NEOPLASM MALIGNANT
     Dosage: UNK
     Route: 042
  3. TAXOL [Suspect]
     Indication: LUNG NEOPLASM MALIGNANT
     Dosage: UNK
     Route: 042

REACTIONS (7)
  - Dyspnoea [Unknown]
  - Pyrexia [Unknown]
  - Pleural effusion [Unknown]
  - Photopsia [Unknown]
  - Diarrhoea [Unknown]
  - Decreased appetite [Unknown]
  - Dizziness [Unknown]
